FAERS Safety Report 4731805-5 (Version None)
Quarter: 2005Q3

REPORT INFORMATION
  Report Type: 
  Country: None (occurrence: None)
  Receive Date: 20050802
  Receipt Date: 20050727
  Transmission Date: 20060218
  Serious: Yes (Hospitalization)
  Sender: FDA-Public Use
  Company Number: PHRM2005FR02177

PATIENT
  Age: 50 Year
  Sex: Female

DRUGS (2)
  1. TAREG [Suspect]
     Route: 048
     Dates: start: 20010101, end: 20050627
  2. PYOSTACINE [Suspect]
     Indication: URINARY TRACT INFECTION
     Route: 048
     Dates: start: 20050620, end: 20050627

REACTIONS (3)
  - DERMATITIS BULLOUS [None]
  - DERMATITIS EXFOLIATIVE [None]
  - PHOTOSENSITIVITY REACTION [None]
